FAERS Safety Report 8507280-1 (Version None)
Quarter: 2012Q3

REPORT INFORMATION
  Report Type: 
  Country: None (occurrence: None)
  Receive Date: 20120712
  Receipt Date: 20120702
  Transmission Date: 20120928
  Serious: Yes (Death)
  Sender: FDA-Public Use
  Company Number: IT-FRI-1000037024

PATIENT

DRUGS (2)
  1. ESCITALOPRAM [Suspect]
     Dosage: 10 MG
     Route: 064
     Dates: start: 20120613, end: 20120622
  2. ESCITALOPRAM [Suspect]
     Dosage: 10 MG
     Route: 064
     Dates: end: 20120606

REACTIONS (1)
  - FOETAL GROWTH RESTRICTION [None]
